FAERS Safety Report 8408006-2 (Version None)
Quarter: 2012Q2

REPORT INFORMATION
  Report Type: 
  Country: None (occurrence: None)
  Receive Date: 20120604
  Receipt Date: 20120525
  Transmission Date: 20120825
  Serious: Yes (Hospitalization, Disabling, Other)
  Sender: FDA-Public Use
  Company Number: US-MERCK-1202USA04374

PATIENT
  Age: 56 Year
  Sex: Female

DRUGS (3)
  1. FOSAMAX [Suspect]
     Indication: OSTEOPENIA
     Route: 048
     Dates: start: 20040101, end: 20060501
  2. FOSAMAX [Suspect]
     Route: 048
  3. BONIVA [Suspect]
     Indication: OSTEOPENIA
     Route: 048
     Dates: start: 20060501, end: 20080101

REACTIONS (6)
  - FEMUR FRACTURE [None]
  - UTERINE DISORDER [None]
  - ARTHROPATHY [None]
  - ARTHRITIS [None]
  - LOW TURNOVER OSTEOPATHY [None]
  - ASTHMA [None]
